FAERS Safety Report 13462258 (Version 1)
Quarter: 2017Q2

REPORT INFORMATION
  Report Type: Spontaneous
  Country: US (occurrence: US)
  Receive Date: 20170420
  Receipt Date: 20170420
  Transmission Date: 20170830
  Serious: No
  Sender: FDA-Public Use
  Company Number: US-BAUSCH-BL-2016-014540

PATIENT
  Age: 63 Year
  Sex: Female
  Weight: 61.29 kg

DRUGS (3)
  1. CENTRUM SILVER [Concomitant]
     Active Substance: MINERALS\VITAMINS
     Indication: PRODUCT USED FOR UNKNOWN INDICATION
     Route: 048
  2. LEVOTHYROXINE. [Concomitant]
     Active Substance: LEVOTHYROXINE
     Indication: THYROID DISORDER
     Route: 048
  3. ARESTIN [Suspect]
     Active Substance: MINOCYCLINE HYDROCHLORIDE
     Indication: TOOTH DISORDER
     Dosage: FIVE IMPLANTS PLACED IN THE MOUTH AROUND THREE OR FOUR OF HER TEETH
     Route: 048
     Dates: start: 20160608, end: 20160608

REACTIONS (6)
  - Head discomfort [Recovering/Resolving]
  - Eye swelling [Recovering/Resolving]
  - Swelling face [Recovering/Resolving]
  - Rash [Recovering/Resolving]
  - Rash pruritic [Recovering/Resolving]
  - Secretion discharge [Recovering/Resolving]

NARRATIVE: CASE EVENT DATE: 20160609
